FAERS Safety Report 17329703 (Version 2)
Quarter: 2020Q1

REPORT INFORMATION
  Report Type: Report from Study
  Country: US (occurrence: US)
  Receive Date: 20200127
  Receipt Date: 20200331
  Transmission Date: 20200409
  Serious: Yes (Death)
  Sender: FDA-Public Use
  Company Number: US-TAIHO ONCOLOGY  INC-EU-2020-00177

PATIENT
  Sex: Female

DRUGS (7)
  1. COMPAZINE [Concomitant]
     Active Substance: PROCHLORPERAZINE MALEATE
  2. LONSURF [Suspect]
     Active Substance: TIPIRACIL HYDROCHLORIDE\TRIFLURIDINE
     Indication: COLORECTAL CANCER
     Dosage: CYCLE NUMBER UNKNOWN
     Route: 048
     Dates: start: 20191230, end: 20200106
  3. METOPROLOL. [Concomitant]
     Active Substance: METOPROLOL
  4. IMODIUM [Concomitant]
     Active Substance: LOPERAMIDE HYDROCHLORIDE
  5. LOMOTIL [Concomitant]
     Active Substance: ATROPINE SULFATE\DIPHENOXYLATE HYDROCHLORIDE
  6. MSIR [Concomitant]
     Active Substance: MORPHINE SULFATE
  7. NEXIUM [Concomitant]
     Active Substance: ESOMEPRAZOLE MAGNESIUM

REACTIONS (1)
  - Appendix cancer [Fatal]
